FAERS Safety Report 14773498 (Version 1)
Quarter: 2018Q2

REPORT INFORMATION
  Report Type: Spontaneous
  Country: AU (occurrence: AU)
  Receive Date: 20180418
  Receipt Date: 20180418
  Transmission Date: 20180711
  Serious: Yes (Other)
  Sender: FDA-Public Use
  Company Number: AU-GLAXOSMITHKLINE-AU2018GSK063779

PATIENT
  Age: 59 Year
  Sex: Male

DRUGS (1)
  1. VOLTAREN OSTEO GEL 12 HOURLY [Suspect]
     Active Substance: DICLOFENAC DIETHYLAMINE
     Indication: BACK PAIN
     Dosage: UNK(150G)
     Dates: start: 20180408

REACTIONS (3)
  - Hypersensitivity [Recovered/Resolved]
  - Pruritus generalised [Recovered/Resolved]
  - Myocardial infarction [Recovered/Resolved]
